FAERS Safety Report 10541333 (Version 1)
Quarter: 2014Q4

REPORT INFORMATION
  Report Type: Spontaneous
  Country: US (occurrence: None)
  Receive Date: 20141010
  Receipt Date: 20141010
  Transmission Date: 20150529
  Serious: No
  Sender: FDA-Public Use
  Company Number: 163-POMAL-14074086

PATIENT
  Age: 73 Year
  Sex: Male

DRUGS (12)
  1. LANTUS SOLOSTAR ( INSULIN GLARGINE) [Concomitant]
  2. FUROSEMIDE. [Concomitant]
     Active Substance: FUROSEMIDE
  3. WARFARIN [Concomitant]
     Active Substance: WARFARIN
  4. CARBIDOPA-LEVODOPA ( SINEMET) [Concomitant]
  5. ECOTRIN ( ACETYLSALICYLIC ACID) [Concomitant]
  6. POMALYST [Suspect]
     Active Substance: POMALIDOMIDE
     Indication: PLASMA CELL MYELOMA
     Dosage: 4 MG, 21 IN 28 D, PO
     Route: 048
     Dates: start: 20140214
  7. AZILECT ( RASAGILINE MESYLATE) [Concomitant]
  8. ATORVASTATIN [Concomitant]
     Active Substance: ATORVASTATIN
  9. DIOVAN ( VALSARTAN) [Concomitant]
  10. LYRICA ( PREGABALIN) [Concomitant]
  11. METFORMIN [Concomitant]
     Active Substance: METFORMIN HYDROCHLORIDE
  12. DEXAMETHASONE. [Concomitant]
     Active Substance: DEXAMETHASONE

REACTIONS (3)
  - Diarrhoea [None]
  - Constipation [None]
  - Memory impairment [None]

NARRATIVE: CASE EVENT DATE: 20140214
